FAERS Safety Report 9079507 (Version 1)
Quarter: 2013Q1

REPORT INFORMATION
  Report Type: Report from Study
  Country: US (occurrence: US)
  Receive Date: 20130130
  Receipt Date: 20130130
  Transmission Date: 20140127
  Serious: No
  Sender: FDA-Public Use
  Company Number: US-ABBOTT-12P-163-0970301-00

PATIENT
  Age: 51 Year
  Sex: Female

DRUGS (4)
  1. HUMIRA 40 MG/0.8 ML PEN [Suspect]
     Indication: PSORIASIS
     Dosage: LOADING DOSE
     Dates: start: 20120810
  2. UNKNOWN SLEEPING PILL (NAME NOT PROVIDED) [Concomitant]
     Indication: INSOMNIA
     Dosage: AT NIGHT
  3. UNKNOWN ANTIDEPRESSANT (NAME NOT PROVIDED) [Concomitant]
     Indication: DEPRESSION
  4. UNKNOWN STOMACH PILL (NAME NOT PROVIDED) [Concomitant]
     Indication: GALLBLADDER DISORDER

REACTIONS (1)
  - Injection site pain [Recovered/Resolved]
